FAERS Safety Report 5674594-2 (Version None)
Quarter: 2008Q1

REPORT INFORMATION
  Report Type: 
  Country: None (occurrence: None)
  Receive Date: 20080319
  Receipt Date: 20080319
  Transmission Date: 20080703
  Serious: Yes (Other)
  Sender: FDA-Public Use
  Company Number: None

PATIENT
  Sex: Female
  Weight: 56.6996 kg

DRUGS (1)
  1. ZYRTEC [Suspect]
     Indication: HYPERSENSITIVITY
     Dosage: 1 10MG TABLET 24 HOURS PO  APPROX 8 YRS
     Route: 048

REACTIONS (5)
  - CONTUSION [None]
  - DRUG DEPENDENCE [None]
  - HYPERSENSITIVITY [None]
  - PRURITUS [None]
  - SKIN HAEMORRHAGE [None]
